FAERS Safety Report 8584420-X (Version None)
Quarter: 2012Q3

REPORT INFORMATION
  Report Type: 
  Country: None (occurrence: None)
  Receive Date: 20120810
  Receipt Date: 20120801
  Transmission Date: 20120928
  Serious: Yes (Hospitalization)
  Sender: FDA-Public Use
  Company Number: FR-BRISTOL-MYERS SQUIBB COMPANY-16832347

PATIENT
  Age: 89 Year
  Sex: Female

DRUGS (7)
  1. ESOMEPRAZOLE [Suspect]
     Route: 048
     Dates: end: 20120702
  2. AMOXICILLIN [Concomitant]
     Dosage: BASE
  3. ZOLPIDEM [Concomitant]
  4. EFFEXOR [Suspect]
     Indication: DEPRESSION
     Dosage: TABS
     Route: 048
     Dates: start: 20120101, end: 20120701
  5. CHLOROQUINE PHOSPHATE [Suspect]
     Route: 048
     Dates: end: 20120701
  6. ASPIRIN [Concomitant]
     Dosage: POWDER FOR ORAL SOLUTION IN SACHET
     Route: 048
  7. IRBESARTAN [Suspect]
     Route: 048
     Dates: end: 20120703

REACTIONS (3)
  - BLOOD PRESSURE INCREASED [None]
  - HYPONATRAEMIA [None]
  - URINARY TRACT INFECTION [None]
